FAERS Safety Report 6946556-6 (Version None)
Quarter: 2010Q3

REPORT INFORMATION
  Report Type: 
  Country: None (occurrence: None)
  Receive Date: 20100827
  Receipt Date: 20090730
  Transmission Date: 20110219
  Serious: No
  Sender: FDA-Public Use
  Company Number: US-ABBOTT-09P-163-0588954-00

PATIENT
  Sex: Female
  Weight: 90.8 kg

DRUGS (8)
  1. NIASPAN [Suspect]
     Indication: BLOOD CHOLESTEROL INCREASED
     Dates: start: 20090701, end: 20090730
  2. APIDRA [Suspect]
     Indication: DIABETES MELLITUS
     Dates: start: 20090101, end: 20090701
  3. NOVOLOG [Concomitant]
     Indication: DIABETES MELLITUS
     Dates: start: 20090701
  4. HUMALOG [Concomitant]
     Indication: DIABETES MELLITUS
  5. IRON [Concomitant]
     Indication: ANAEMIA
  6. QUINAPRIL [Concomitant]
     Indication: HYPERTENSION
  7. AMARYL [Concomitant]
     Indication: DIABETES MELLITUS
  8. LANTUS [Concomitant]
     Indication: DIABETES MELLITUS

REACTIONS (3)
  - PRURITUS [None]
  - RENAL IMPAIRMENT [None]
  - WEIGHT INCREASED [None]
